FAERS Safety Report 7713739-7 (Version None)
Quarter: 2011Q3

REPORT INFORMATION
  Report Type: 
  Country: None (occurrence: None)
  Receive Date: 20110826
  Receipt Date: 20110822
  Transmission Date: 20111222
  Serious: Yes (Other)
  Sender: FDA-Public Use
  Company Number: US-ABBOTT-11P-163-0848553-00

PATIENT
  Sex: Male
  Weight: 39.498 kg

DRUGS (8)
  1. FIORICET [Concomitant]
     Indication: HEADACHE
  2. HUMIRA [Suspect]
     Dates: start: 20110201
  3. HUMIRA [Suspect]
     Indication: CROHN'S DISEASE
     Dates: start: 20090101
  4. OXYCONTIN [Concomitant]
     Indication: PAIN
  5. METHOTREXATE [Concomitant]
     Indication: CROHN'S DISEASE
     Dates: start: 20090101
  6. PREVACID [Suspect]
     Indication: GASTROOESOPHAGEAL REFLUX DISEASE
     Dates: end: 20110801
  7. KEPPRA [Concomitant]
     Indication: CONVULSION
  8. OXYCONTIN [Concomitant]
     Indication: ANTIDIARRHOEAL SUPPORTIVE CARE

REACTIONS (5)
  - DECREASED APPETITE [None]
  - DEPRESSION [None]
  - HYPERSOMNIA [None]
  - BLOOD MAGNESIUM DECREASED [None]
  - ASTHENIA [None]
